FAERS Safety Report 17111559 (Version 2)
Quarter: 2019Q4

REPORT INFORMATION
  Report Type: Spontaneous
  Country: US (occurrence: US)
  Receive Date: 20191204
  Receipt Date: 20191205
  Transmission Date: 20200122
  Serious: Yes (Other)
  Sender: FDA-Public Use
  Company Number: US-LEXICON PHARMACEUTICALS, INC-19-1606-01069

PATIENT
  Sex: Female

DRUGS (2)
  1. XERMELO [Suspect]
     Active Substance: TELOTRISTAT ETHYL
     Indication: CARCINOID TUMOUR
     Dates: start: 20191113
  2. SANDOSTATIN [Concomitant]
     Active Substance: OCTREOTIDE ACETATE
     Dosage: AND SA FOR AS NEEDED USE

REACTIONS (7)
  - Product dose omission [Unknown]
  - Fatigue [Unknown]
  - Pelvic pain [Unknown]
  - Nausea [Recovering/Resolving]
  - Radiotherapy [Unknown]
  - Abdominal pain [Unknown]
  - Diarrhoea [Unknown]
